FAERS Safety Report 21660070 (Version 1)
Quarter: 2022Q4

REPORT INFORMATION
  Report Type: Spontaneous
  Country: CN (occurrence: CN)
  Receive Date: 20221130
  Receipt Date: 20221130
  Transmission Date: 20230113
  Serious: No
  Sender: FDA-Public Use
  Company Number: CN-PADAGIS-2022PAD00877

PATIENT

DRUGS (9)
  1. REPAGLINIDE [Suspect]
     Active Substance: REPAGLINIDE
     Indication: Diabetes mellitus
     Dosage: 1 MG, BID (TWICE A DAY)
     Route: 065
  2. ACARBOSE [Suspect]
     Active Substance: ACARBOSE
     Indication: Diabetes mellitus
     Dosage: 50 MG, TID (3 TIMES A DAY)
     Route: 065
  3. METFORMIN [Concomitant]
     Active Substance: METFORMIN HYDROCHLORIDE
     Indication: Diabetes mellitus
     Dosage: 0.5 MG, BID (TWICE A DAY)
     Route: 065
  4. METFORMIN [Concomitant]
     Active Substance: METFORMIN HYDROCHLORIDE
     Dosage: 1 G, QD (ONCE IN A DAY)  ( DOSE WAS INCREASED TO 1G/DAY)
     Route: 065
  5. ISOSORBIDE MONONITRATE [Concomitant]
     Active Substance: ISOSORBIDE MONONITRATE
     Indication: Coronary artery disease
     Dosage: 5 MG, (MORRNING)
     Route: 065
  6. ISOSORBIDE MONONITRATE [Concomitant]
     Active Substance: ISOSORBIDE MONONITRATE
     Dosage: 10 MG, (AFTERNOON)
     Route: 065
  7. ISOSORBIDE MONONITRATE [Concomitant]
     Active Substance: ISOSORBIDE MONONITRATE
     Dosage: 5 MG, (EVENING)
     Route: 065
  8. HERBALS [Concomitant]
     Active Substance: HERBALS
     Indication: Coronary artery disease
     Dosage: 10 CAPSULES (THREE TIMES A DAY)
     Route: 065
  9. ATORVASTATIN [Concomitant]
     Active Substance: ATORVASTATIN
     Indication: Coronary artery disease
     Dosage: 10 MG, QD (ONCE IN THE EVENING)
     Route: 065

REACTIONS (1)
  - Blood glucose fluctuation [Unknown]
